FAERS Safety Report 10852977 (Version 1)
Quarter: 2015Q1

REPORT INFORMATION
  Report Type: Report from Study
  Country: NL (occurrence: NL)
  Receive Date: 20150223
  Receipt Date: 20150223
  Transmission Date: 20150721
  Serious: Yes (Hospitalization)
  Sender: FDA-Public Use
  Company Number: NL-AMGEN-NLDSL2015015607

PATIENT
  Age: 50 Year
  Sex: Female

DRUGS (1)
  1. NEULASTA [Suspect]
     Active Substance: PEGFILGRASTIM
     Indication: PRODUCT USED FOR UNKNOWN INDICATION
     Dosage: 6 MG, Q3W
     Route: 058
     Dates: start: 20150124

REACTIONS (8)
  - Influenza like illness [Unknown]
  - Diarrhoea [Unknown]
  - Dehydration [Unknown]
  - Constipation [Recovered/Resolved]
  - Pyrexia [Unknown]
  - Hypophagia [Unknown]
  - Leukopenia [Unknown]
  - Myalgia [Unknown]

NARRATIVE: CASE EVENT DATE: 201501
